FAERS Safety Report 9838462 (Version 1)
Quarter: 2014Q1

REPORT INFORMATION
  Report Type: Spontaneous
  Country: US (occurrence: US)
  Receive Date: 20140123
  Receipt Date: 20140123
  Transmission Date: 20141002
  Serious: Yes (Other)
  Sender: FDA-Public Use
  Company Number: US-ASTELLAS-2013US001718

PATIENT
  Age: 86 Year
  Sex: Male

DRUGS (2)
  1. TARCEVA [Suspect]
     Indication: NON-SMALL CELL LUNG CANCER
     Dosage: 100 MG, UID/QD
     Route: 048
     Dates: start: 20121025
  2. TARCEVA [Suspect]
     Dosage: 100 MG, QOD
     Route: 048

REACTIONS (10)
  - Incorrect dose administered [Unknown]
  - Malignant neoplasm progression [Unknown]
  - Pain [Recovering/Resolving]
  - Onychalgia [Recovering/Resolving]
  - Alopecia [Recovering/Resolving]
  - Rash [Recovering/Resolving]
  - Fatigue [Recovering/Resolving]
  - Diarrhoea [Recovering/Resolving]
  - Constipation [Recovering/Resolving]
  - Acne [Recovering/Resolving]
